FAERS Safety Report 7759794-X (Version None)
Quarter: 2011Q3

REPORT INFORMATION
  Report Type: 
  Country: None (occurrence: None)
  Receive Date: 20110915
  Receipt Date: 20110905
  Transmission Date: 20111222
  Serious: Yes (Hospitalization, Disabling)
  Sender: FDA-Public Use
  Company Number: 2011SP041970

PATIENT
  Age: 31 Year
  Sex: Female

DRUGS (15)
  1. OMEPRAZOLE [Suspect]
     Indication: GASTRIC PH DECREASED
     Dates: start: 20110301
  2. PHOSPHORATE (NO PREF. NAME) [Suspect]
     Indication: PRODUCT USED FOR UNKNOWN INDICATION
  3. LORAZEPAM [Suspect]
     Dates: start: 20110201, end: 20110101
  4. DIAZEPAM [Suspect]
  5. PAROXETINE HCL [Suspect]
     Dosage: 20 MG;TID;PO 20 MG;BID;PO
     Route: 048
     Dates: end: 20110501
  6. PAROXETINE HCL [Suspect]
     Dosage: 20 MG;TID;PO 20 MG;BID;PO
     Route: 048
     Dates: start: 19990101, end: 20100101
  7. MIRTAZAPINE (MIRTAZAPINE /01293210/) [Suspect]
     Dosage: 30 MG
     Dates: start: 20101101
  8. CLONAZEPAM [Suspect]
     Dates: start: 20110101
  9. AMITRIPTYLINE HCL [Suspect]
     Indication: PRODUCT USED FOR UNKNOWN INDICATION
  10. CODEINE SULFATE [Suspect]
     Indication: PRODUCT USED FOR UNKNOWN INDICATION
  11. QUETIAPINE FUMARATE [Suspect]
     Dates: start: 20110201, end: 20110501
  12. DOMPERIDONE (DOMPERIDONE) [Suspect]
     Indication: PRODUCT USED FOR UNKNOWN INDICATION
  13. PROCYCLIDINE HYDROCHLORIDE 2MG TAB [Suspect]
     Dates: start: 20110415
  14. TRAMADOL HCL [Suspect]
     Indication: NECK PAIN
  15. TRAMADOL HCL [Suspect]
     Indication: BACK PAIN

REACTIONS (69)
  - NIGHTMARE [None]
  - MALAISE [None]
  - MUSCLE SPASMS [None]
  - CONVULSION [None]
  - ANXIETY [None]
  - LIP SWELLING [None]
  - HEADACHE [None]
  - ASTHENIA [None]
  - DECREASED APPETITE [None]
  - PYREXIA [None]
  - MENSTRUAL DISORDER [None]
  - GENERAL PHYSICAL HEALTH DETERIORATION [None]
  - HEART RATE INCREASED [None]
  - COGWHEEL RIGIDITY [None]
  - MYDRIASIS [None]
  - NEUROLEPTIC MALIGNANT SYNDROME [None]
  - AGITATION [None]
  - HALLUCINATION [None]
  - CYANOSIS [None]
  - PSYCHOTIC DISORDER [None]
  - DISSOCIATION [None]
  - MANIA [None]
  - TREMOR [None]
  - FEELING JITTERY [None]
  - SLEEP DISORDER [None]
  - SUICIDAL IDEATION [None]
  - HYPERHIDROSIS [None]
  - PALLOR [None]
  - PRURITUS [None]
  - INCONTINENCE [None]
  - URINARY RETENTION [None]
  - SWELLING FACE [None]
  - DISORIENTATION [None]
  - SCHIZOPHRENIA [None]
  - CONTUSION [None]
  - RESTLESS LEGS SYNDROME [None]
  - FATIGUE [None]
  - FEELING OF DESPAIR [None]
  - DISTURBANCE IN ATTENTION [None]
  - DEPRESSION [None]
  - DELIRIUM [None]
  - VOMITING [None]
  - FEELING ABNORMAL [None]
  - MOOD SWINGS [None]
  - SKIN DISCOLOURATION [None]
  - APHASIA [None]
  - BACK PAIN [None]
  - NECK PAIN [None]
  - ARTHRALGIA [None]
  - RESTLESSNESS [None]
  - CONFUSIONAL STATE [None]
  - EMOTIONAL DISORDER [None]
  - IRRITABILITY [None]
  - VISUAL IMPAIRMENT [None]
  - DEPERSONALISATION [None]
  - H1N1 INFLUENZA [None]
  - SWOLLEN TONGUE [None]
  - VISION BLURRED [None]
  - SEROTONIN SYNDROME [None]
  - PREGNANCY [None]
  - DYSPNOEA [None]
  - MUSCULOSKELETAL STIFFNESS [None]
  - MYALGIA [None]
  - PARAESTHESIA [None]
  - PAROSMIA [None]
  - DROOLING [None]
  - DYSSTASIA [None]
  - BLOOD SODIUM DECREASED [None]
  - TINNITUS [None]
